FAERS Safety Report 4635222-8 (Version None)
Quarter: 2005Q2

REPORT INFORMATION
  Report Type: 
  Country: None (occurrence: None)
  Receive Date: 20050411
  Receipt Date: 20050330
  Transmission Date: 20051028
  Serious: No
  Sender: FDA-Public Use
  Company Number: 2005UW04994

PATIENT
  Age: 69 Year
  Sex: Female
  Weight: 59.8 kg

DRUGS (7)
  1. ARIMIDEX [Suspect]
     Indication: BREAST CANCER
  2. PRILOSEC [Concomitant]
  3. ASPIRIN [Concomitant]
  4. B12 [Concomitant]
  5. CALCIUM GLUCONATE [Concomitant]
  6. MYLANTA [Concomitant]
  7. VITAMIN C [Concomitant]

REACTIONS (3)
  - CHEST DISCOMFORT [None]
  - PALPITATIONS [None]
  - THROAT TIGHTNESS [None]
